FAERS Safety Report 5271169-4 (Version None)
Quarter: 2007Q1

REPORT INFORMATION
  Report Type: 
  Country: None (occurrence: None)
  Receive Date: 20070315
  Receipt Date: 20070227
  Transmission Date: 20070707
  Serious: Yes (Other)
  Sender: FDA-Public Use
  Company Number: DSA_29522_2007

PATIENT
  Age: 82 Year
  Sex: Female

DRUGS (8)
  1. RENIVACE [Suspect]
     Indication: CARDIAC FAILURE
     Dosage: 2.5 MG QD PO
     Route: 048
     Dates: start: 20070201, end: 20070227
  2. ITOROL [Suspect]
     Indication: ANGINA PECTORIS
     Dosage: 200 MG QD PO
     Route: 048
     Dates: start: 20070201, end: 20070227
  3. ETODOLAC [Suspect]
     Indication: ANALGESIC THERAPY
     Dosage: 200 MG QD PO
     Route: 048
     Dates: start: 20070214, end: 20070227
  4. ACTONEL [Concomitant]
  5. LOXONIN /00890701/ [Concomitant]
  6. MUCOSTA [Concomitant]
  7. OSTEN [Concomitant]
  8. CELGOTIN [Concomitant]

REACTIONS (1)
  - ECZEMA [None]
